FAERS Safety Report 10977517 (Version 1)
Quarter: 2015Q2

REPORT INFORMATION
  Report Type: Spontaneous
  Country: US (occurrence: None)
  Receive Date: 20150401
  Receipt Date: 20150401
  Transmission Date: 20150821
  Serious: Yes (Disabling)
  Sender: FDA-Public Use
  Company Number: None

PATIENT
  Age: 51 Year
  Sex: Female
  Weight: 49.9 kg

DRUGS (3)
  1. CELECOXIB. [Suspect]
     Active Substance: CELECOXIB
     Indication: MUSCULOSKELETAL PAIN
     Dosage: 200 MG 1 TIME PER DAY
     Route: 048
     Dates: start: 20141219, end: 20150331
  2. CELECOXIB. [Suspect]
     Active Substance: CELECOXIB
     Indication: PAIN IN EXTREMITY
     Dosage: 200 MG 1 TIME PER DAY
     Route: 048
     Dates: start: 20141219, end: 20150331
  3. CELECOXIB. [Suspect]
     Active Substance: CELECOXIB
     Indication: ARTHRALGIA
     Dosage: 200 MG 1 TIME PER DAY
     Route: 048
     Dates: start: 20141219, end: 20150331

REACTIONS (7)
  - Product substitution issue [None]
  - Gait disturbance [None]
  - Asthenia [None]
  - Arthralgia [None]
  - Joint range of motion decreased [None]
  - Arthropathy [None]
  - Pain in extremity [None]

NARRATIVE: CASE EVENT DATE: 20150331
